FAERS Safety Report 21531285 (Version 1)
Quarter: 2022Q4

REPORT INFORMATION
  Report Type: Spontaneous
  Country: US (occurrence: None)
  Receive Date: 20221028
  Receipt Date: 20221028
  Transmission Date: 20230113
  Serious: No
  Sender: FDA-Public Use
  Company Number: None

PATIENT
  Age: 59 Year
  Sex: Female
  Weight: 78 kg

DRUGS (1)
  1. NIRMATRELVIR\RITONAVIR [Suspect]
     Active Substance: NIRMATRELVIR\RITONAVIR
     Indication: COVID-19
     Dosage: 3 TAB BID PO?
     Route: 048
     Dates: start: 20220429, end: 20220504

REACTIONS (2)
  - Diarrhoea [None]
  - Taste disorder [None]

NARRATIVE: CASE EVENT DATE: 20220504
